FAERS Safety Report 8531596-6 (Version None)
Quarter: 2012Q3

REPORT INFORMATION
  Report Type: 
  Country: None (occurrence: None)
  Receive Date: 20120723
  Receipt Date: 20120718
  Transmission Date: 20120928
  Serious: Yes (Other)
  Sender: FDA-Public Use
  Company Number: PHEH2012US014075

PATIENT
  Sex: Male

DRUGS (8)
  1. AZILECT [Concomitant]
     Indication: PARKINSON'S DISEASE
     Dosage: 1 MG, DAILY
     Route: 048
  2. SINEMET [Concomitant]
     Indication: PARKINSON'S DISEASE
     Dosage: 50 MG, DAILY
     Route: 048
  3. STALEVO 100 [Suspect]
     Dosage: 150 MG, 5QD
     Route: 048
  4. STALEVO 100 [Suspect]
     Dosage: 125 MG, 5QD
     Route: 048
  5. SINEMET [Concomitant]
     Dosage: 25 MG, DAILY
     Route: 048
  6. AMANTADINE HCL [Concomitant]
     Indication: PARKINSON'S DISEASE
     Dosage: 100 MG, QID
     Route: 048
  7. GABAPENTIN [Concomitant]
     Indication: PARKINSON'S DISEASE
     Dosage: 100 MG, 6QD
     Route: 048
  8. STALEVO 100 [Suspect]
     Indication: PARKINSON'S DISEASE
     Dosage: 100 MG, UNK
     Route: 048

REACTIONS (5)
  - HYPOTENSION [None]
  - DIZZINESS [None]
  - MUSCULOSKELETAL STIFFNESS [None]
  - MUSCLE SPASMS [None]
  - LOSS OF CONSCIOUSNESS [None]
